FAERS Safety Report 7148418-0 (Version None)
Quarter: 2010Q4

REPORT INFORMATION
  Report Type: 
  Country: None (occurrence: None)
  Receive Date: 20101124
  Receipt Date: 20101116
  Transmission Date: 20110411
  Serious: Yes (Other)
  Sender: FDA-Public Use
  Company Number: 2010SP060432

PATIENT
  Age: 45 Year
  Sex: Female

DRUGS (1)
  1. LINESSA (DESOGESTREL/ETHINYLESTRADIOL /00570801/) [Suspect]
     Indication: PRODUCT USED FOR UNKNOWN INDICATION

REACTIONS (3)
  - ABDOMINAL PAIN [None]
  - FATIGUE [None]
  - VISION BLURRED [None]
